FAERS Safety Report 19507086 (Version 2)
Quarter: 2021Q4

REPORT INFORMATION
  Report Type: Spontaneous
  Country: US (occurrence: None)
  Receive Date: 20210708
  Receipt Date: 20211124
  Transmission Date: 20220303
  Serious: Yes (Other)
  Sender: FDA-Public Use
  Company Number: US-ROCHE-2865267

PATIENT
  Age: 6 Year
  Sex: Male

DRUGS (4)
  1. NUTROPIN [Suspect]
     Active Substance: SOMATROPIN
     Indication: Hypopituitarism
     Dosage: 10 MG/ 2 ML
     Route: 065
  2. NUTROPIN [Suspect]
     Active Substance: SOMATROPIN
  3. NUTROPIN [Suspect]
     Active Substance: SOMATROPIN
     Route: 058
     Dates: start: 201907
  4. NUTROPIN [Suspect]
     Active Substance: SOMATROPIN

REACTIONS (2)
  - Device malfunction [Unknown]
  - No adverse event [Unknown]

NARRATIVE: CASE EVENT DATE: 20210622
